FAERS Safety Report 5148362-4 (Version None)
Quarter: 2006Q4

REPORT INFORMATION
  Report Type: 
  Country: None (occurrence: None)
  Receive Date: 20061106
  Receipt Date: 20061024
  Transmission Date: 20070319
  Serious: Yes (Other)
  Sender: FDA-Public Use
  Company Number: 2006130522

PATIENT
  Age: 52 Year
  Sex: Female

DRUGS (1)
  1. LYRICA [Suspect]
     Indication: CENTRAL PAIN SYNDROME
     Dosage: 150 MG (DAILY)

REACTIONS (6)
  - DRUG INEFFECTIVE [None]
  - EYE PAIN [None]
  - PAIN [None]
  - SUICIDAL BEHAVIOUR [None]
  - SWELLING FACE [None]
  - VISUAL DISTURBANCE [None]
